FAERS Safety Report 19442159 (Version 1)
Quarter: 2021Q2

REPORT INFORMATION
  Report Type: Spontaneous
  Country: US (occurrence: US)
  Receive Date: 20210618
  Receipt Date: 20210618
  Transmission Date: 20210717
  Serious: Yes (Other)
  Sender: FDA-Public Use
  Company Number: None

PATIENT
  Age: 41 Year
  Sex: Female
  Weight: 67.5 kg

DRUGS (14)
  1. AMBIEN [Suspect]
     Active Substance: ZOLPIDEM TARTRATE
     Indication: INSOMNIA
     Dosage: ?          QUANTITY:1 TABLET(S);?
     Route: 048
  2. ZOLOFT [Concomitant]
     Active Substance: SERTRALINE HYDROCHLORIDE
  3. GEODON [Concomitant]
     Active Substance: ZIPRASIDONE HYDROCHLORIDE\ZIPRASIDONE MESYLATE
  4. LITHOBID [Concomitant]
     Active Substance: LITHIUM CARBONATE
  5. MULTI VITAMIN [Concomitant]
     Active Substance: VITAMINS
  6. MULTI VITAMIN [Concomitant]
     Active Substance: VITAMINS
  7. VITAMIN D [Concomitant]
     Active Substance: VITAMIN D NOS
  8. ZYRTEC [Concomitant]
     Active Substance: CETIRIZINE HYDROCHLORIDE
  9. SPIRONOLATONE [Concomitant]
     Active Substance: SPIRONOLACTONE
  10. LEVOXYL [Concomitant]
     Active Substance: LEVOTHYROXINE SODIUM
  11. LYRICA [Concomitant]
     Active Substance: PREGABALIN
  12. CALCIUM [Concomitant]
     Active Substance: CALCIUM
  13. METFORMIN [Concomitant]
     Active Substance: METFORMIN HYDROCHLORIDE
  14. BIOTIN [Concomitant]
     Active Substance: BIOTIN

REACTIONS (3)
  - Amnesia [None]
  - Legal problem [None]
  - Road traffic accident [None]

NARRATIVE: CASE EVENT DATE: 20130422
